FAERS Safety Report 24088697 (Version 7)
Quarter: 2025Q4

REPORT INFORMATION
  Report Type: Spontaneous
  Country: EU (occurrence: EU)
  Receive Date: 20240715
  Receipt Date: 20251222
  Transmission Date: 20260117
  Serious: Yes (Hospitalization, Other)
  Sender: RHYTHM PHARMACEUTICALS
  Company Number: EU-Rhythm Pharmaceuticals, Inc.-2024RHM000253

PATIENT
  Age: 42 Year
  Sex: Female
  Weight: 91.2 kg

DRUGS (22)
  1. IMCIVREE [Suspect]
     Active Substance: SETMELANOTIDE
     Indication: Obesity
     Dosage: 1 MILLIGRAM, QD
     Route: 058
     Dates: start: 20240405
  2. IMCIVREE [Suspect]
     Active Substance: SETMELANOTIDE
     Dosage: 3 MILLIGRAM, QD
     Route: 058
     Dates: start: 202407, end: 202410
  3. IMCIVREE [Suspect]
     Active Substance: SETMELANOTIDE
     Dosage: 2 MILLIGRAM, QD
     Route: 058
     Dates: start: 20241004
  4. IMCIVREE [Suspect]
     Active Substance: SETMELANOTIDE
     Dosage: 3 MILLIGRAM, QD
     Route: 058
     Dates: end: 202502
  5. IMCIVREE [Suspect]
     Active Substance: SETMELANOTIDE
     Dosage: 2 MILLIGRAM, QD
     Route: 058
     Dates: start: 202502
  6. LEVOTHYROXINE [Concomitant]
     Active Substance: LEVOTHYROXINE
     Indication: Hypopituitarism
     Dosage: 1 TABLET IN THE MORNING ON AN EMPTY STOMACH, 150 MICROGRAM, QD
     Route: 065
  7. LEVOTHYROXINE [Concomitant]
     Active Substance: LEVOTHYROXINE
     Dosage: 100 MICROGRAM
     Dates: start: 202412
  8. DESMOPRESSIN ACETATE [Concomitant]
     Active Substance: DESMOPRESSIN ACETATE
     Indication: Product used for unknown indication
     Dosage: UNK UNK , 1-1-1-1.5
     Route: 065
  9. HYDROCORTISONE [Concomitant]
     Active Substance: HYDROCORTISONE
     Indication: Blood corticotrophin decreased
     Dosage: 1.5 OR 2 TABLETS IN THE MORNING + 0.5 OR 1 TABLET IN THE LUNCHTIME + 0.5 TABLET IN THE AFTERNOON
     Route: 065
  10. HYDROCORTISONE [Concomitant]
     Active Substance: HYDROCORTISONE
     Dosage: 15-0-16-0 MG
     Route: 065
     Dates: start: 20241219
  11. HYDROCORTISONE [Concomitant]
     Active Substance: HYDROCORTISONE
     Dosage: 10 MILLIGRAM, BID
     Dates: start: 20251004
  12. HYDROCORTISONE [Concomitant]
     Active Substance: HYDROCORTISONE
     Dosage: 5 MILLIGRAM, QD
     Dates: start: 20251004
  13. COLPRONE [Concomitant]
     Active Substance: MEDROGESTONE
     Indication: Product used for unknown indication
     Dosage: 1 TABLET PER DAY - 2 TABLETS FROM DAY 1 TO DAY 25, QD
     Route: 065
  14. COLPRONE [Concomitant]
     Active Substance: MEDROGESTONE
     Dosage: 1 TABLET PER DAY - 2 TABLETS FROM DAY 1 TO DAY 2, QD
     Route: 065
  15. COLPRONE [Concomitant]
     Active Substance: MEDROGESTONE
     Dosage: 1 TABLET PER DAY - 2 TABLETS FROM DAY 7 TO  DAY 25
     Route: 065
     Dates: start: 202510
  16. ESTRADIOL [Concomitant]
     Active Substance: ESTRADIOL
     Indication: Product used for unknown indication
     Dosage: 1 PRESSURE FROM DAY 1 TO DAY 25, QD
     Route: 065
  17. ESTRADIOL [Concomitant]
     Active Substance: ESTRADIOL
     Dosage: 1 PRESSURE FROM DAY 7 TO DAY 25, QD
     Route: 065
     Dates: start: 202510
  18. ZOLMITRIPTAN [Concomitant]
     Active Substance: ZOLMITRIPTAN
     Indication: Product used for unknown indication
     Dosage: 1 BOX PER MONTH
     Route: 065
  19. AMITRIPTYLINE HYDROCHLORIDE [Concomitant]
     Active Substance: AMITRIPTYLINE HYDROCHLORIDE
     Indication: Product used for unknown indication
     Dosage: 5 GTT, QD
     Route: 065
  20. OZEMPIC [Concomitant]
     Active Substance: SEMAGLUTIDE
     Indication: Sleep disorder
     Dosage: 1 INJECTION PER WEEK, 1 MILLIGRAM, QW
     Route: 065
     Dates: end: 20240703
  21. SOMATROPIN [Concomitant]
     Active Substance: SOMATROPIN
     Indication: Growth hormone deficiency
     Dosage: .4 MILLIGRAM, QD
     Route: 065
     Dates: start: 20241219
  22. ZOMIG [Concomitant]
     Active Substance: ZOLMITRIPTAN
     Indication: Migraine
     Dosage: 1 BOX PER MONTH
     Route: 065
     Dates: start: 20241010

REACTIONS (9)
  - Hypokalaemia [Unknown]
  - Tonsillitis [Recovered/Resolved]
  - Infection [Recovered/Resolved]
  - Off label use [Not Recovered/Not Resolved]
  - Sarcopenia [Not Recovered/Not Resolved]
  - Headache [Not Recovered/Not Resolved]
  - Nausea [Not Recovered/Not Resolved]
  - Skin hyperpigmentation [Unknown]
  - Melanocytic naevus [Unknown]

NARRATIVE: CASE EVENT DATE: 20240405
